FAERS Safety Report 10261266 (Version 1)
Quarter: 2014Q2

REPORT INFORMATION
  Report Type: Report from Study
  Country: AU (occurrence: AU)
  Receive Date: 20140626
  Receipt Date: 20140626
  Transmission Date: 20141212
  Serious: Yes (Hospitalization)
  Sender: FDA-Public Use
  Company Number: AU-ALEXION PHARMACEUTICALS INC.-A201301987

PATIENT
  Age: 54 Year
  Sex: Female
  Weight: 84.1 kg

DRUGS (22)
  1. ECULIZUMAB [Suspect]
     Indication: PROPHYLAXIS AGAINST TRANSPLANT REJECTION
     Dosage: 1200 MG, SINGLE
     Route: 042
     Dates: start: 20121126, end: 20121126
  2. ECULIZUMAB [Suspect]
     Dosage: 900 MG, SINGLE
     Route: 042
     Dates: start: 20121127, end: 20121127
  3. ECULIZUMAB [Suspect]
     Dosage: 900 MG, SINGLE
     Route: 042
     Dates: start: 20121203, end: 20121203
  4. ECULIZUMAB [Suspect]
     Dosage: 900 MG, SINGLE
     Route: 042
     Dates: start: 20121211, end: 20121211
  5. ECULIZUMAB [Suspect]
     Dosage: 900 MG, SINGLE
     Route: 042
     Dates: start: 20121219, end: 20121219
  6. ECULIZUMAB [Suspect]
     Dosage: 900 MG, SINGLE
     Route: 042
     Dates: start: 20121224, end: 20121224
  7. ECULIZUMAB [Suspect]
     Dosage: 1200 MG, SINGLE
     Route: 042
     Dates: start: 20121231, end: 20121231
  8. ECULIZUMAB [Suspect]
     Dosage: 1200 MG, SINGLE
     Route: 042
     Dates: start: 20130114, end: 20130114
  9. ECULIZUMAB [Suspect]
     Dosage: 1200 MG, SINGLE
     Route: 042
     Dates: start: 20130129, end: 20130129
  10. ECULIZUMAB [Suspect]
     Dosage: 1200 MG, SINGLE
     Route: 042
     Dates: start: 20130423, end: 20130423
  11. PREDNISOLONE [Concomitant]
     Dates: start: 20121128
  12. MYCOPHENOLATE MOFETIL [Concomitant]
     Dates: start: 20121126
  13. TACROLIMUS [Concomitant]
     Dates: start: 20121127
  14. BACTRIM DS [Concomitant]
     Dates: start: 20121126
  15. VALGANCICLOVIR [Concomitant]
     Dates: start: 20130221
  16. PANTOPRAZOLE [Concomitant]
     Dates: start: 20121127
  17. PARACETAMOL [Concomitant]
     Dates: start: 20121126
  18. AMOXICILLIN [Concomitant]
     Dates: start: 20130205
  19. ATORVASTATIN [Concomitant]
     Dates: start: 20130107
  20. ALENDRONATE [Concomitant]
     Dates: start: 20130225
  21. CALCITRIOL [Concomitant]
     Dates: start: 20130226
  22. FUROSEMIDE [Concomitant]
     Dates: start: 20130418

REACTIONS (1)
  - Transplant rejection [Recovered/Resolved]
